FAERS Safety Report 4831885-2 (Version None)
Quarter: 2005Q4

REPORT INFORMATION
  Report Type: 
  Country: None (occurrence: None)
  Receive Date: 20051118
  Receipt Date: 20051110
  Transmission Date: 20060501
  Serious: Yes (Hospitalization)
  Sender: FDA-Public Use
  Company Number: DE-ROCHE-424242

PATIENT
  Age: 38 Year
  Sex: Male
  Weight: 65 kg

DRUGS (4)
  1. RIBAVIRIN [Suspect]
     Route: 048
     Dates: start: 20050824
  2. PEG-INTRON [Suspect]
     Dosage: 1 MCG/KG.
     Route: 058
     Dates: start: 20050824
  3. ALCOHOL [Suspect]
     Indication: DRUG USE FOR UNKNOWN INDICATION
     Route: 065
  4. POLAMIDON [Concomitant]
     Route: 048
     Dates: start: 19950424

REACTIONS (6)
  - ALCOHOL WITHDRAWAL SYNDROME [None]
  - CONFUSIONAL STATE [None]
  - DELUSION [None]
  - EPILEPSY [None]
  - HALLUCINATION [None]
  - PERSONALITY DISORDER [None]
